FAERS Safety Report 9422540 (Version 2)
Quarter: 2013Q3

REPORT INFORMATION
  Report Type: Report from Study
  Country: FR (occurrence: FR)
  Receive Date: 20130726
  Receipt Date: 20130802
  Transmission Date: 20140515
  Serious: Yes (Hospitalization)
  Sender: FDA-Public Use
  Company Number: FR-PFIZER INC-2013208451

PATIENT
  Age: 53 Year
  Sex: Male
  Weight: 45 kg

DRUGS (12)
  1. SUNITINIB MALATE [Suspect]
     Indication: METASTATIC RENAL CELL CARCINOMA
     Dosage: 50 MG, 1X/DAY IN THE EVENING
     Route: 048
     Dates: start: 20130710, end: 20130713
  2. CONTRAMAL [Concomitant]
     Indication: PAIN
     Dosage: 300 MG, DAILY
     Route: 048
     Dates: end: 20130715
  3. PARACETAMOL [Concomitant]
     Indication: PAIN
     Dosage: 4000 MG, DAILY
     Route: 048
  4. ONDANSETRON [Concomitant]
     Indication: NAUSEA
     Dosage: 8 MG, DAILY
     Route: 048
     Dates: start: 20130614
  5. PREDNISOLONE [Concomitant]
     Indication: LUNG DISORDER
     Dosage: 20 MG, DAILY
     Dates: start: 20130614
  6. TRAMADOL HYDROCHLORIDE [Concomitant]
     Indication: PAIN
     Dosage: 100 MG, DAILY
     Route: 048
     Dates: start: 20130614
  7. SEROPLEX [Concomitant]
     Dosage: 1 DF, 1X/DAY IN THE MORNING
  8. ATARAX [Concomitant]
     Dosage: 0.5 DF IN THE MORNING, 0.5 DF AT NOON AND 2 DF IN THE EVENING
  9. ZYPREXA [Concomitant]
     Dosage: 2 DF, IN THE EVENING
  10. SOLUPRED [Concomitant]
     Dosage: 1 DF, 1X/DAY
  11. LOVENOX [Concomitant]
     Dosage: 0.4 ML (1 DF), 1X/DAY
  12. OXYGEN [Concomitant]
     Dosage: 3 TO 5L/MIN

REACTIONS (2)
  - Acute respiratory distress syndrome [Recovered/Resolved]
  - Haemoptysis [Recovered/Resolved]
